FAERS Safety Report 24624223 (Version 1)
Quarter: 2024Q4

REPORT INFORMATION
  Report Type: Spontaneous
  Country: FI (occurrence: FI)
  Receive Date: 20241115
  Receipt Date: 20241115
  Transmission Date: 20250115
  Serious: Yes (Hospitalization, Other)
  Sender: PFIZER
  Company Number: FI-ABBVIE-5988933

PATIENT
  Age: 42 Year
  Sex: Male

DRUGS (8)
  1. ADALIMUMAB [Suspect]
     Active Substance: ADALIMUMAB
     Dosage: UNK
     Route: 058
     Dates: start: 201809
  2. ADALIMUMAB [Suspect]
     Active Substance: ADALIMUMAB
     Dosage: UNK
     Route: 058
     Dates: start: 2019
  3. MERCAPTOPURINE [Concomitant]
     Active Substance: MERCAPTOPURINE
     Dosage: 100 MG, 1X/DAY
     Dates: start: 2017
  4. MERCAPTOPURINE [Concomitant]
     Active Substance: MERCAPTOPURINE
     Dosage: UNK
     Dates: start: 2019
  5. MERCAPTOPURINE [Concomitant]
     Active Substance: MERCAPTOPURINE
     Dosage: UNK
     Dates: start: 2020
  6. MESALAMINE [Concomitant]
     Active Substance: MESALAMINE
     Dosage: UNK
  7. PREDNISOLONE [Concomitant]
     Active Substance: PREDNISOLONE
     Dosage: UNK
     Dates: start: 201806
  8. PREDNISOLONE [Concomitant]
     Active Substance: PREDNISOLONE
     Dosage: UNK
     Dates: start: 201905

REACTIONS (9)
  - Pneumonia [Unknown]
  - Diarrhoea haemorrhagic [Recovered/Resolved]
  - Appendicitis [Unknown]
  - Psychotic symptom [Unknown]
  - Amoebiasis [Unknown]
  - Osteopenia [Unknown]
  - Cryptosporidiosis infection [Unknown]
  - Diarrhoea [Unknown]
  - Clostridium test positive [Unknown]

NARRATIVE: CASE EVENT DATE: 20180101
